APPROVED DRUG PRODUCT: OFLOXACIN
Active Ingredient: OFLOXACIN
Strength: 0.3%
Dosage Form/Route: SOLUTION/DROPS;OTIC
Application: A090395 | Product #001
Applicant: ALVOGEN INC
Approved: Aug 11, 2009 | RLD: No | RS: No | Type: DISCN